FAERS Safety Report 5479013-7 (Version None)
Quarter: 2007Q4

REPORT INFORMATION
  Report Type: 
  Country: None (occurrence: None)
  Receive Date: 20071006
  Receipt Date: 20070924
  Transmission Date: 20080405
  Serious: Yes (Other)
  Sender: FDA-Public Use
  Company Number: GB-PFIZER INC-2007080469

PATIENT
  Age: 32 Year
  Sex: Female

DRUGS (2)
  1. VARENICLINE TABLETS [Suspect]
     Indication: SMOKING CESSATION THERAPY
     Route: 048
     Dates: start: 20070313, end: 20070502
  2. CONTRACEPTIVE, UNSPECIFIED [Concomitant]
     Route: 048

REACTIONS (3)
  - BEDRIDDEN [None]
  - DEPRESSION [None]
  - NAUSEA [None]
